FAERS Safety Report 6985238-1 (Version None)
Quarter: 2010Q3

REPORT INFORMATION
  Report Type: 
  Country: None (occurrence: None)
  Receive Date: 20100915
  Receipt Date: 20100908
  Transmission Date: 20110219
  Serious: Yes (Hospitalization)
  Sender: FDA-Public Use
  Company Number: NL-ROCHE-726351

PATIENT
  Sex: Male
  Weight: 78 kg

DRUGS (3)
  1. BEVACIZUMAB [Suspect]
     Indication: GLIOBLASTOMA
     Dosage: TEMPORARILY INTERRUPTED.
     Route: 065
     Dates: start: 20100615, end: 20100824
  2. LOMUSTINE [Suspect]
     Indication: GLIOBLASTOMA
     Dosage: TEMPORARILY INTERRUPTED.
     Route: 065
     Dates: start: 20100615, end: 20100727
  3. LACTULOSE [Concomitant]
     Indication: CONSTIPATION

REACTIONS (1)
  - APHASIA [None]
